FAERS Safety Report 18226717 (Version 5)
Quarter: 2021Q2

REPORT INFORMATION
  Report Type: Report from Study
  Country: None (occurrence: CO)
  Receive Date: 20200903
  Receipt Date: 20210527
  Transmission Date: 20210717
  Serious: Yes (Other)
  Sender: FDA-Public Use
  Company Number: CO-ABBVIE-20K-036-3549040-00

PATIENT
  Sex: Female

DRUGS (5)
  1. HUMIRA [Suspect]
     Active Substance: ADALIMUMAB
     Indication: RHEUMATOID ARTHRITIS
     Route: 058
     Dates: end: 20200813
  2. HUMIRA [Suspect]
     Active Substance: ADALIMUMAB
     Route: 058
     Dates: start: 2020, end: 20201228
  3. HUMIRA [Suspect]
     Active Substance: ADALIMUMAB
     Indication: RHEUMATOID ARTHRITIS
     Route: 058
     Dates: start: 20090828
  4. HUMIRA [Suspect]
     Active Substance: ADALIMUMAB
     Route: 058
  5. THYROXINE [Concomitant]
     Active Substance: LEVOTHYROXINE
     Indication: HYPERTHYROIDISM
     Dosage: NOT REPORTED
     Route: 048

REACTIONS (9)
  - Visual impairment [Not Recovered/Not Resolved]
  - Arthropathy [Recovering/Resolving]
  - Fall [Recovering/Resolving]
  - Finger deformity [Recovered/Resolved]
  - Osteoporosis [Recovering/Resolving]
  - Hip fracture [Recovering/Resolving]
  - Hand deformity [Recovering/Resolving]
  - Upper limb fracture [Recovering/Resolving]
  - Foot deformity [Not Recovered/Not Resolved]

NARRATIVE: CASE EVENT DATE: 2016
